FAERS Safety Report 8490888-X (Version None)
Quarter: 2012Q2

REPORT INFORMATION
  Report Type: 
  Country: None (occurrence: None)
  Receive Date: 20120628
  Receipt Date: 20120628
  Transmission Date: 20120825
  Serious: Yes (Hospitalization)
  Sender: FDA-Public Use
  Company Number: None

PATIENT
  Age: 74 Year
  Sex: Female

DRUGS (2)
  1. WARFARIN SODIUM [Suspect]
     Indication: ATRIAL FIBRILLATION
     Dosage: MG PO
     Route: 048
     Dates: start: 20030617
  2. FLUCONAZOLE [Suspect]
     Dosage: ML
     Dates: start: 20120614, end: 20120624

REACTIONS (3)
  - PNEUMONIA ASPIRATION [None]
  - INTERNATIONAL NORMALISED RATIO ABNORMAL [None]
  - URINARY TRACT INFECTION [None]
